FAERS Safety Report 5787262-3 (Version None)
Quarter: 2008Q2

REPORT INFORMATION
  Report Type: 
  Country: None (occurrence: None)
  Receive Date: 20080625
  Receipt Date: 20070911
  Transmission Date: 20081010
  Serious: No
  Sender: FDA-Public Use
  Company Number: US-ASTRAZENECA-2007UW21384

PATIENT
  Age: 68 Year
  Sex: Female
  Weight: 77.1 kg

DRUGS (9)
  1. PULMICORT FLEXHALER [Suspect]
     Indication: ASTHMA
     Dosage: ONE PUFF BID
     Route: 055
     Dates: start: 20070801
  2. ZETIA [Concomitant]
  3. ASPIRIN [Concomitant]
  4. INSULIN [Concomitant]
  5. METFORMIN HCL [Concomitant]
  6. CELEBREX [Concomitant]
  7. ALBUTEROL [Concomitant]
  8. SLEEPING PILL [Concomitant]
  9. COUGH MEDICINE [Concomitant]

REACTIONS (6)
  - COUGH [None]
  - DYSPHONIA [None]
  - MALAISE [None]
  - NASOPHARYNGITIS [None]
  - UPPER RESPIRATORY TRACT INFECTION [None]
  - WHEEZING [None]
